FAERS Safety Report 24217674 (Version 1)
Quarter: 2024Q3

REPORT INFORMATION
  Report Type: Spontaneous
  Country: US (occurrence: US)
  Receive Date: 20240816
  Receipt Date: 20240816
  Transmission Date: 20241017
  Serious: No
  Sender: SANOFI AVENTIS
  Company Number: US-SA-2024MK000036

PATIENT
  Sex: Female

DRUGS (2)
  1. AFREZZA [Suspect]
     Active Substance: INSULIN HUMAN
     Indication: Product used for unknown indication
     Dosage: WHEN SHE EATS A MEAL WITH 27 GRAMS OF CARBS, SHE TAKES HER 4 UNIT CARTRIDGE
  2. INSULIN HUMAN [Suspect]
     Active Substance: INSULIN HUMAN
     Indication: Product used for unknown indication

REACTIONS (1)
  - Blood glucose increased [Unknown]
